FAERS Safety Report 10249155 (Version 2)
Quarter: 2014Q3

REPORT INFORMATION
  Report Type: Spontaneous
  Country: AU (occurrence: AU)
  Receive Date: 20140620
  Receipt Date: 20140715
  Transmission Date: 20150326
  Serious: Yes (Other)
  Sender: FDA-Public Use
  Company Number: ALCN2014AU003523

PATIENT
  Sex: Female

DRUGS (2)
  1. CEPHAZOLIN [Concomitant]
     Active Substance: CEFAZOLIN
     Dosage: 5 MG, UNK
     Route: 031
     Dates: start: 20140508, end: 20140508
  2. BSS [Suspect]
     Active Substance: CALCIUM CHLORIDE\MAGNESIUM CHLORIDE\POTASSIUM CHLORIDE\SODIUM ACETATE\SODIUM CHLORIDE\SODIUM CITRATE
     Dosage: 1 DF, 15 ML
     Route: 031
     Dates: start: 20140508, end: 20140508

REACTIONS (2)
  - Off label use [Unknown]
  - Toxic anterior segment syndrome [Unknown]
